FAERS Safety Report 13456112 (Version 1)
Quarter: 2017Q2

REPORT INFORMATION
  Report Type: Spontaneous
  Country: US (occurrence: US)
  Receive Date: 20170419
  Receipt Date: 20170419
  Transmission Date: 20170830
  Serious: Yes (Life-Threatening)
  Sender: FDA-Public Use
  Company Number: None

PATIENT
  Age: 42 Year
  Sex: Female

DRUGS (1)
  1. STELARA [Suspect]
     Active Substance: USTEKINUMAB
     Indication: PSORIASIS
     Dosage: 45 MG Q3 MONTHS SUBQ
     Route: 058
     Dates: start: 20120607, end: 20160324

REACTIONS (1)
  - B-cell lymphoma [None]

NARRATIVE: CASE EVENT DATE: 20160608
